FAERS Safety Report 14950932 (Version 1)
Quarter: 2018Q2

REPORT INFORMATION
  Report Type: Spontaneous
  Country: FR (occurrence: FR)
  Receive Date: 20180530
  Receipt Date: 20180530
  Transmission Date: 20180711
  Serious: Yes (Other)
  Sender: FDA-Public Use
  Company Number: FR-MERCK KGAA-2048658

PATIENT
  Age: 66 Year
  Sex: Female

DRUGS (1)
  1. NOVOTHYROX [Suspect]
     Active Substance: LEVOTHYROXINE SODIUM
     Indication: PRODUCT USED FOR UNKNOWN INDICATION

REACTIONS (12)
  - Escherichia urinary tract infection [None]
  - Fatigue [None]
  - Memory impairment [None]
  - Blood sodium increased [None]
  - Dizziness [None]
  - Irritability [None]
  - High density lipoprotein increased [None]
  - Sleep disorder [None]
  - Insomnia [None]
  - Asthenia [None]
  - Muscle spasms [None]
  - Decreased interest [None]

NARRATIVE: CASE EVENT DATE: 20170221
